FAERS Safety Report 11440699 (Version 1)
Quarter: 2015Q3

REPORT INFORMATION
  Report Type: Spontaneous
  Country: US (occurrence: US)
  Receive Date: 20150901
  Receipt Date: 20150901
  Transmission Date: 20151125
  Serious: No
  Sender: FDA-Public Use
  Company Number: US-ROCHE-1040362

PATIENT
  Sex: Female

DRUGS (4)
  1. RIBASPHERE RIBAPAK [Suspect]
     Active Substance: RIBAVIRIN
     Indication: CHRONIC HEPATITIS C
     Dosage: PER DAY IN DIVIDED DOSES
     Route: 048
     Dates: start: 20120116
  2. PEGASYS [Suspect]
     Active Substance: PEGINTERFERON ALFA-2A
     Indication: CHRONIC HEPATITIS C
     Route: 058
     Dates: start: 20120116, end: 20121208
  3. RIBASPHERE RIBAPAK [Suspect]
     Active Substance: RIBAVIRIN
     Dosage: PER DAY
     Route: 048
     Dates: start: 20120215
  4. TELAPREVIR [Suspect]
     Active Substance: TELAPREVIR
     Indication: CHRONIC HEPATITIS C
     Route: 065
     Dates: start: 20120116, end: 20120404

REACTIONS (8)
  - Heart rate increased [Unknown]
  - Swollen tongue [Unknown]
  - Haemoglobin decreased [Unknown]
  - Dry mouth [Unknown]
  - Red blood cell count decreased [Unknown]
  - Fatigue [Unknown]
  - Neutrophil count decreased [Unknown]
  - Tongue oedema [Unknown]
